FAERS Safety Report 14262098 (Version 1)
Quarter: 2017Q4

REPORT INFORMATION
  Report Type: Spontaneous
  Country: TR (occurrence: TR)
  Receive Date: 20171208
  Receipt Date: 20171208
  Transmission Date: 20180321
  Serious: Yes (Other)
  Sender: FDA-Public Use
  Company Number: TR-GLENMARK PHARMACEUTICALS-2017GMK029964

PATIENT
  Age: 47 Year
  Sex: Female

DRUGS (2)
  1. LIDOCAINE. [Suspect]
     Active Substance: LIDOCAINE
     Indication: LOCAL ANAESTHESIA
     Dosage: 5 ML, USING A 22-GAUGE NEEDLE FOR LOCAL INFILTRATION ANESTHESIA
     Route: 065
  2. EPINEPHRINE. [Concomitant]
     Active Substance: EPINEPHRINE
     Indication: LOCAL ANAESTHESIA
     Dosage: UNK USING A 22-GAUGE NEEDLE FOR LOCAL INFILTRATION ANESTHESIA
     Route: 065

REACTIONS (2)
  - Vocal cord paralysis [Recovered/Resolved]
  - Paralysis recurrent laryngeal nerve [Recovered/Resolved]
